FAERS Safety Report 15499230 (Version 1)
Quarter: 2018Q4

REPORT INFORMATION
  Report Type: Other
  Country: FR (occurrence: FR)
  Receive Date: 20181015
  Receipt Date: 20181015
  Transmission Date: 20190205
  Serious: Yes (Hospitalization)
  Sender: FDA-Public Use
  Company Number: FR-APOTEX-2018AP022349

PATIENT
  Age: 30 Year
  Sex: Female

DRUGS (4)
  1. PAROXETINE. [Suspect]
     Active Substance: PAROXETINE
     Indication: PRODUCT USED FOR UNKNOWN INDICATION
     Dosage: 200 MG, QD (IN TOTAL)
     Route: 048
     Dates: start: 20180821, end: 20180821
  2. LEPTICUR [Suspect]
     Active Substance: TROPATEPINE HYDROCHLORIDE
     Indication: PRODUCT USE IN UNAPPROVED INDICATION
     Dosage: 100 MG, QD (IN TOTAL)
     Route: 048
     Dates: start: 20180821, end: 20180821
  3. ABILIFY [Suspect]
     Active Substance: ARIPIPRAZOLE
     Indication: PRODUCT USED FOR UNKNOWN INDICATION
     Dosage: 100 MG, QD (IN TOTAL)
     Route: 048
     Dates: start: 20180821, end: 20180821
  4. SERESTA [Suspect]
     Active Substance: OXAZEPAM
     Indication: PRODUCT USED FOR UNKNOWN INDICATION
     Dosage: 100 MG, QD (IN TOTAL)
     Route: 048
     Dates: start: 20180821, end: 20180821

REACTIONS (3)
  - Somnolence [Recovered/Resolved]
  - Dry mouth [Recovered/Resolved]
  - Intentional overdose [Recovered/Resolved]

NARRATIVE: CASE EVENT DATE: 20180821
